FAERS Safety Report 19999104 (Version 1)
Quarter: 2021Q4

REPORT INFORMATION
  Report Type: Spontaneous
  Country: US (occurrence: US)
  Receive Date: 20211027
  Receipt Date: 20211027
  Transmission Date: 20220303
  Serious: No
  Sender: FDA-Public Use
  Company Number: US-TEVA-2021-US-1969539

PATIENT
  Sex: Female

DRUGS (2)
  1. METRONIDAZOLE [Suspect]
     Active Substance: METRONIDAZOLE
     Route: 048
  2. METRONIDAZOLE [Suspect]
     Active Substance: METRONIDAZOLE
     Route: 048
     Dates: start: 20211013

REACTIONS (5)
  - Nausea [Unknown]
  - Decreased appetite [Unknown]
  - Chromaturia [Unknown]
  - Product taste abnormal [Unknown]
  - Product solubility abnormal [Unknown]

NARRATIVE: CASE EVENT DATE: 20211013
